FAERS Safety Report 16053762 (Version 6)
Quarter: 2020Q1

REPORT INFORMATION
  Report Type: Spontaneous
  Country: HU (occurrence: HU)
  Receive Date: 20190308
  Receipt Date: 20200210
  Transmission Date: 20200409
  Serious: Yes (Hospitalization, Other)
  Sender: FDA-Public Use
  Company Number: HU-MYLANLABS-2019M1021507

PATIENT
  Age: 77 Year
  Sex: Female

DRUGS (4)
  1. GUAIFENESIN. [Suspect]
     Active Substance: GUAIFENESIN
     Indication: BACK PAIN
     Dosage: UNK, INFUSION
     Route: 042
  2. ALLOPURINOL. [Suspect]
     Active Substance: ALLOPURINOL
     Indication: HYPERURICAEMIA
     Dosage: UNK
     Route: 048
  3. TRAMADOL. [Suspect]
     Active Substance: TRAMADOL
     Indication: BACK PAIN
     Dosage: UNK (INFUSION)
     Route: 042
  4. METHYLPREDNISOLONE. [Suspect]
     Active Substance: METHYLPREDNISOLONE
     Indication: BACK PAIN
     Dosage: UNK
     Route: 042

REACTIONS (13)
  - Blood creatinine increased [Recovered/Resolved]
  - Conjunctivitis [Recovered/Resolved]
  - Oropharyngeal candidiasis [Recovered/Resolved]
  - Thrombocytopenia [Recovered/Resolved]
  - Pruritus [Recovered/Resolved]
  - Iridocyclitis [Recovered/Resolved]
  - Back pain [Unknown]
  - Dysphagia [Unknown]
  - Blood urea increased [Recovered/Resolved]
  - Rash [Unknown]
  - Uveitis [Unknown]
  - Eye disorder [Unknown]
  - Stevens-Johnson syndrome [Recovered/Resolved]
